FAERS Safety Report 23626451 (Version 1)
Quarter: 2024Q1

REPORT INFORMATION
  Report Type: Spontaneous
  Country: DE (occurrence: DE)
  Receive Date: 20240313
  Receipt Date: 20240313
  Transmission Date: 20240410
  Serious: Yes (Other)
  Sender: FDA-Public Use
  Company Number: DE-DSJP-DSE-2024-111003

PATIENT
  Age: 60 Year
  Sex: Female

DRUGS (2)
  1. ENHERTU [Suspect]
     Active Substance: FAM-TRASTUZUMAB DERUXTECAN-NXKI
     Indication: HER2 mutant non-small cell lung cancer
     Dosage: UNK UNK, CYCLIC (AFTER TWO CYCLES)
     Route: 065
     Dates: start: 202309
  2. ENHERTU [Suspect]
     Active Substance: FAM-TRASTUZUMAB DERUXTECAN-NXKI
     Dosage: UNK UNK, CYCLIC
     Route: 065
     Dates: start: 202310

REACTIONS (2)
  - Interstitial lung disease [Recovering/Resolving]
  - Bronchitis chronic [Recovering/Resolving]
